FAERS Safety Report 7459690-1 (Version None)
Quarter: 2011Q2

REPORT INFORMATION
  Report Type: 
  Country: None (occurrence: None)
  Receive Date: 20110505
  Receipt Date: 20110422
  Transmission Date: 20111010
  Serious: Yes (Hospitalization)
  Sender: FDA-Public Use
  Company Number: US-ELI_LILLY_AND_COMPANY-US201007004806

PATIENT
  Sex: Female

DRUGS (16)
  1. DILTIAZEM [Concomitant]
     Indication: BLOOD PRESSURE ABNORMAL
  2. ALBUTEROL SULFATE AND IPRATROPIUM BROMIDE [Concomitant]
     Dosage: UNK UNK, QID
  3. FORTEO [Suspect]
     Indication: OSTEOPOROSIS
     Dosage: 20 UG, QD
     Dates: start: 20100706
  4. SIMVASTATIN [Concomitant]
  5. VITAMIN E [Concomitant]
  6. OXYGEN [Concomitant]
     Dosage: 2 L, QD
  7. MELATONIN [Concomitant]
  8. GLUCOSAMINE CHONDROITIN [Concomitant]
  9. MULTI-VITAMIN [Concomitant]
  10. FORTEO [Suspect]
     Dosage: 20 UG, QD
  11. PREDNISONE [Concomitant]
     Dosage: 5 MG, QD
  12. ADVAIR DISKUS 100/50 [Concomitant]
     Dosage: 500 DF, BID
     Route: 055
  13. PRILOSEC [Concomitant]
     Dosage: UNK, BID
  14. CALCIUM [Concomitant]
     Dosage: 600 MG, EACH MORNING
  15. TYLENOL                                 /SCH/ [Concomitant]
     Dosage: 1 DF, BID
  16. CALCIUM [Concomitant]
     Dosage: 500 MG, BID

REACTIONS (6)
  - PAIN IN EXTREMITY [None]
  - ARTHRALGIA [None]
  - INJECTION SITE HAEMATOMA [None]
  - COUGH [None]
  - PYREXIA [None]
  - BACK DISORDER [None]
